FAERS Safety Report 21308571 (Version 1)
Quarter: 2022Q3

REPORT INFORMATION
  Report Type: Report from Study
  Country: GB (occurrence: GB)
  Receive Date: 20220908
  Receipt Date: 20220908
  Transmission Date: 20221026
  Serious: Yes (Death, Hospitalization, Other)
  Sender: FDA-Public Use
  Company Number: None

PATIENT
  Age: 79 Year
  Sex: Male

DRUGS (8)
  1. GEMCITABINE [Suspect]
     Active Substance: GEMCITABINE
     Indication: Diffuse large B-cell lymphoma
  2. DOXORUBICIN HYDROCHLORIDE [Suspect]
     Active Substance: DOXORUBICIN HYDROCHLORIDE
     Indication: Diffuse large B-cell lymphoma
  3. OXALIPLATIN [Suspect]
     Active Substance: OXALIPLATIN
     Indication: Diffuse large B-cell lymphoma
     Dosage: GEMOX/08454001/
  4. CYCLOPHOSPHAMIDE [Suspect]
     Active Substance: CYCLOPHOSPHAMIDE
     Indication: Diffuse large B-cell lymphoma
     Dosage: UNK, GEMOX/08454001/
  5. PREDNISONE [Suspect]
     Active Substance: PREDNISONE
     Indication: Diffuse large B-cell lymphoma
     Dosage: UNK
  6. RITUXIMAB [Suspect]
     Active Substance: RITUXIMAB
     Indication: Product used for unknown indication
     Dosage: UNK, (AS PART OF R-GEMOX SD)
     Dates: start: 20181210
  7. VINCRISTINE [Suspect]
     Active Substance: VINCRISTINE
     Indication: Diffuse large B-cell lymphoma
     Dosage: UNK,
  8. RITUXIMAB [Suspect]
     Active Substance: RITUXIMAB
     Indication: Diffuse large B-cell lymphoma
     Dosage: 700 MG (GIVEN AS PART OF RCHOP)
     Dates: start: 20180605

REACTIONS (16)
  - Chest pain [Recovered/Resolved]
  - Diarrhoea [Recovered/Resolved]
  - Cough [Fatal]
  - Disease progression [Fatal]
  - Vomiting [Recovered/Resolved]
  - Lymphoma [Fatal]
  - Tumour lysis syndrome [Fatal]
  - Gastric dilatation [Fatal]
  - Chest discomfort [Recovered/Resolved]
  - Post procedural haemorrhage [Fatal]
  - Platelet count decreased [Fatal]
  - Hyperkalaemia [Fatal]
  - B-cell lymphoma [Fatal]
  - Acute kidney injury [Fatal]
  - Restlessness [Fatal]
  - Burkitt^s lymphoma [Fatal]

NARRATIVE: CASE EVENT DATE: 20180605
